FAERS Safety Report 23099579 (Version 1)
Quarter: 2023Q4

REPORT INFORMATION
  Report Type: Spontaneous
  Country: PT (occurrence: US)
  Receive Date: 20231024
  Receipt Date: 20231024
  Transmission Date: 20240110
  Serious: No
  Sender: FDA-Public Use
  Company Number: PT-SANOFI-01808333

PATIENT

DRUGS (1)
  1. MOZOBIL [Suspect]
     Active Substance: PLERIXAFOR
     Indication: Combined immunodeficiency
     Dosage: 1 DF (1.2 ML IN 2.5 DAYS)
     Route: 058

REACTIONS (1)
  - Off label use [Unknown]
